FAERS Safety Report 16984548 (Version 1)
Quarter: 2019Q4

REPORT INFORMATION
  Report Type: Spontaneous
  Country: US (occurrence: US)
  Receive Date: 20190917
  Receipt Date: 20190917
  Transmission Date: 20200122
  Serious: No
  Sender: FDA-Public Use
  Company Number: None

PATIENT
  Age: 59 Year
  Sex: Male
  Weight: 122.47 kg

DRUGS (1)
  1. STELARA [Suspect]
     Active Substance: USTEKINUMAB
     Indication: PSORIATIC ARTHROPATHY
     Dosage: INJECT 45MG SUBCUTANEOUSLY ON DAY 0 AND DAY 28 AS?DIRECTED?
     Route: 058
     Dates: start: 201806

REACTIONS (6)
  - Diarrhoea [None]
  - Inflammation [None]
  - Dehydration [None]
  - Influenza [None]
  - Musculoskeletal stiffness [None]
  - Condition aggravated [None]
